FAERS Safety Report 5507706-1 (Version None)
Quarter: 2007Q4

REPORT INFORMATION
  Report Type: 
  Country: None (occurrence: None)
  Receive Date: 20071106
  Receipt Date: 20071105
  Transmission Date: 20080405
  Serious: Yes (Hospitalization)
  Sender: FDA-Public Use
  Company Number: B0493982A

PATIENT
  Age: 79 Year
  Sex: Female
  Weight: 60 kg

DRUGS (7)
  1. AMOXICILLIN [Suspect]
     Indication: LOWER RESPIRATORY TRACT INFECTION
     Route: 048
     Dates: start: 20060221, end: 20060221
  2. AMLODIPINE [Concomitant]
  3. BENDROFLUAZIDE [Concomitant]
  4. DOSULEPIN [Concomitant]
  5. VENTOLIN [Concomitant]
  6. SIMVASTATIN [Concomitant]
  7. BECLOMETHASONE DIPROPIONATE [Concomitant]
     Route: 055

REACTIONS (2)
  - ASTHMA [None]
  - HYPERSENSITIVITY [None]
